FAERS Safety Report 4383333-7 (Version None)
Quarter: 2004Q2

REPORT INFORMATION
  Report Type: 
  Country: None (occurrence: None)
  Receive Date: 20040618
  Receipt Date: 20040527
  Transmission Date: 20050107
  Serious: Yes (Other)
  Sender: FDA-Public Use
  Company Number: USA040568685

PATIENT
  Age: 62 Year
  Sex: Female
  Weight: 95 kg

DRUGS (1)
  1. HUMALOG-HUMAN INSULIN (RDNA) :25% LISPRO, 75% NPL(LI [Suspect]
     Dosage: 45 U DAY
     Dates: start: 20020101

REACTIONS (7)
  - EYE DISORDER [None]
  - EYE HAEMORRHAGE [None]
  - FEELING ABNORMAL [None]
  - HEADACHE [None]
  - NERVE INJURY [None]
  - VISUAL ACUITY REDUCED [None]
  - VISUAL DISTURBANCE [None]
